FAERS Safety Report 13957733 (Version 1)
Quarter: 2017Q3

REPORT INFORMATION
  Report Type: Spontaneous
  Country: US (occurrence: US)
  Receive Date: 20170911
  Receipt Date: 20170911
  Transmission Date: 20171128
  Serious: Yes (Other)
  Sender: FDA-Public Use
  Company Number: US-ROCHE-1129154

PATIENT
  Sex: Male

DRUGS (1)
  1. RITUXAN [Suspect]
     Active Substance: RITUXIMAB
     Indication: NON-HODGKIN^S LYMPHOMA
     Route: 065

REACTIONS (8)
  - Anaphylactic reaction [Unknown]
  - Headache [Unknown]
  - Disease recurrence [Unknown]
  - Conjunctival oedema [Unknown]
  - Throat irritation [Unknown]
  - Chills [Unknown]
  - Vein disorder [Unknown]
  - Eye oedema [Unknown]
